FAERS Safety Report 7778535-3 (Version None)
Quarter: 2011Q3

REPORT INFORMATION
  Report Type: 
  Country: None (occurrence: None)
  Receive Date: 20110926
  Receipt Date: 20110913
  Transmission Date: 20111222
  Serious: Yes (Hospitalization)
  Sender: FDA-Public Use
  Company Number: US-BAYER-2011-021171

PATIENT
  Age: 27 Year
  Sex: Female
  Weight: 98 kg

DRUGS (8)
  1. OMEPRAZOLE [Concomitant]
     Indication: ULCER
     Dosage: UNK
     Dates: start: 20090101
  2. CYMBALTA [Concomitant]
     Dosage: UNK UNK, BID
     Route: 048
  3. DROSPIRENONE AND ETHINYL ESTRADIOL [Suspect]
     Indication: PREMENSTRUAL SYNDROME
     Dosage: UNK
     Route: 048
     Dates: start: 20070101, end: 20090101
  4. TOPAMAX [Concomitant]
     Dosage: 10 MG, BID
     Route: 048
  5. BUSPAR [Concomitant]
     Dosage: 15 MG, UNK
     Route: 048
     Dates: start: 20090101
  6. NAPROXEN [Concomitant]
     Indication: ARTHRALGIA
     Dosage: 500 MG, UNK
     Route: 048
     Dates: start: 20070101, end: 20090101
  7. YASMIN [Suspect]
     Indication: PREMENSTRUAL SYNDROME
     Dosage: UNK
     Route: 048
     Dates: start: 20070101, end: 20090101
  8. YAZ [Suspect]
     Indication: PREMENSTRUAL SYNDROME
     Dosage: UNK
     Route: 048
     Dates: start: 20070101, end: 20090101

REACTIONS (1)
  - PULMONARY EMBOLISM [None]
